FAERS Safety Report 22041816 (Version 1)
Quarter: 2023Q1

REPORT INFORMATION
  Report Type: Spontaneous
  Country: US (occurrence: US)
  Receive Date: 20230227
  Receipt Date: 20230227
  Transmission Date: 20230418
  Serious: No
  Sender: FDA-Public Use
  Company Number: US-PFIZER INC-PV202300035789

PATIENT
  Age: 70 Year
  Sex: Female
  Weight: 115.21 kg

DRUGS (6)
  1. AZULFIDINE [Suspect]
     Active Substance: SULFASALAZINE
     Indication: Rheumatoid arthritis
     Dosage: 2000 MG, DAILY
     Route: 048
     Dates: start: 199601, end: 201606
  2. AZULFIDINE [Suspect]
     Active Substance: SULFASALAZINE
     Dosage: 2000 MG, DAILY
     Route: 048
     Dates: end: 201612
  3. AZULFIDINE [Suspect]
     Active Substance: SULFASALAZINE
     Dosage: 1500 MG
     Route: 048
     Dates: start: 20170808, end: 20171013
  4. AZULFIDINE [Suspect]
     Active Substance: SULFASALAZINE
     Dosage: UNK, DAILY
     Route: 048
     Dates: start: 20171013
  5. TRAMADOL [Concomitant]
     Active Substance: TRAMADOL
     Dosage: UNK
  6. FOLIC ACID [Concomitant]
     Active Substance: FOLIC ACID
     Dosage: UNK

REACTIONS (1)
  - Therapeutic product effect incomplete [Unknown]

NARRATIVE: CASE EVENT DATE: 20170818
